FAERS Safety Report 8935304 (Version 1)
Quarter: 2012Q4

REPORT INFORMATION
  Report Type: 
  Country: SE (occurrence: SE)
  Receive Date: 20121129
  Receipt Date: 20121129
  Transmission Date: 20130627
  Serious: Yes (Hospitalization)
  Sender: FDA-Public Use
  Company Number: SE-GLAXOSMITHKLINE-B0790056A

PATIENT
  Age: 25 Year
  Sex: Female

DRUGS (3)
  1. TROBALT [Suspect]
     Indication: EPILEPSY
     Dosage: 150MG Three times per day
     Route: 065
     Dates: start: 201202
  2. PHENYTOIN [Concomitant]
  3. LEVETIRACETAM [Concomitant]

REACTIONS (3)
  - Convulsion [Unknown]
  - Paraesthesia [Recovered/Resolved]
  - Drug ineffective [Unknown]
